FAERS Safety Report 11584939 (Version 1)
Quarter: 2015Q4

REPORT INFORMATION
  Report Type: Spontaneous
  Country: SK (occurrence: SK)
  Receive Date: 20151001
  Receipt Date: 20151001
  Transmission Date: 20160304
  Serious: Yes (Other)
  Sender: FDA-Public Use
  Company Number: SK-GLAXOSMITHKLINE-SK2015GSK139825

PATIENT
  Age: 35 Year
  Sex: Male

DRUGS (2)
  1. TROBALT [Suspect]
     Active Substance: EZOGABINE
     Indication: TINNITUS
     Dosage: 50 MG, UNK
     Dates: start: 201408
  2. BETAHISTIN [Concomitant]
     Indication: PRODUCT USED FOR UNKNOWN INDICATION
     Dosage: 24 MG, BID

REACTIONS (4)
  - Bladder discomfort [Recovered/Resolved]
  - Somnolence [Recovering/Resolving]
  - Urinary retention [Recovered/Resolved]
  - Product use issue [Unknown]

NARRATIVE: CASE EVENT DATE: 201408
